FAERS Safety Report 10382607 (Version 3)
Quarter: 2014Q4

REPORT INFORMATION
  Report Type: Spontaneous
  Country: US (occurrence: US)
  Receive Date: 20140813
  Receipt Date: 20141013
  Transmission Date: 20150528
  Serious: Yes (Life-Threatening, Other)
  Sender: FDA-Public Use
  Company Number: US-PFIZER INC-2014223039

PATIENT
  Age: 52 Year
  Sex: Female
  Weight: 83 kg

DRUGS (5)
  1. BENICAR [Concomitant]
     Active Substance: OLMESARTAN MEDOXOMIL
     Dosage: UNK
  2. METFORMIN [Concomitant]
     Active Substance: METFORMIN HYDROCHLORIDE
     Dosage: UNK
  3. AMLODIPINE [Concomitant]
     Active Substance: AMLODIPINE BESYLATE
     Dosage: UNK
  4. PRISTIQ EXTENDED RELEASE [Suspect]
     Active Substance: DESVENLAFAXINE SUCCINATE
     Indication: DEPRESSION
     Dosage: 50 MG, 1X/DAY
     Route: 048
     Dates: start: 20140702
  5. TRAZODONE [Concomitant]
     Active Substance: TRAZODONE HYDROCHLORIDE
     Dosage: UNK

REACTIONS (18)
  - Angioedema [Recovered/Resolved]
  - Arthralgia [Recovered/Resolved]
  - White blood cell count abnormal [Unknown]
  - Peripheral swelling [Recovered/Resolved]
  - Pruritus [Recovered/Resolved]
  - Panic reaction [Recovered/Resolved]
  - Frustration [Recovered/Resolved]
  - Palatal disorder [Recovered/Resolved]
  - Joint swelling [Recovered/Resolved]
  - Insomnia [Recovered/Resolved]
  - Anaphylactic reaction [Recovered/Resolved]
  - Oedema [Recovered/Resolved]
  - Lip swelling [Recovered/Resolved]
  - Discomfort [Recovered/Resolved]
  - Blood glucose increased [Unknown]
  - Hypersensitivity [Recovered/Resolved]
  - Rash erythematous [Recovered/Resolved]
  - Pain in extremity [Recovered/Resolved]

NARRATIVE: CASE EVENT DATE: 20140731
